FAERS Safety Report 17605053 (Version 1)
Quarter: 2020Q1

REPORT INFORMATION
  Report Type: Spontaneous
  Country: US (occurrence: US)
  Receive Date: 20200331
  Receipt Date: 20200331
  Transmission Date: 20200409
  Serious: Yes (Hospitalization)
  Sender: FDA-Public Use
  Company Number: None

PATIENT
  Age: 2 Year
  Sex: Male

DRUGS (3)
  1. NEUPOGEN [Suspect]
     Active Substance: FILGRASTIM
     Indication: BONE CANCER
     Route: 058
     Dates: start: 20200110
  2. GABAPENTIN. [Concomitant]
     Active Substance: GABAPENTIN
  3. NYSTATIN. [Concomitant]
     Active Substance: NYSTATIN

REACTIONS (1)
  - Chemotherapy [None]

NARRATIVE: CASE EVENT DATE: 20200330
